FAERS Safety Report 4706333-3 (Version None)
Quarter: 2005Q2

REPORT INFORMATION
  Report Type: 
  Country: None (occurrence: None)
  Receive Date: 20050629
  Receipt Date: 20050616
  Transmission Date: 20051028
  Serious: Yes (Hospitalization)
  Sender: FDA-Public Use
  Company Number: 2005-DE-02293GD

PATIENT
  Age: 47 Year
  Sex: Male

DRUGS (4)
  1. MORPHINE [Suspect]
     Indication: PAIN
     Dosage: 25 MG, IT
     Route: 039
  2. HYDROMORPHONE HCL [Suspect]
     Indication: PAIN
     Dosage: IV
     Route: 042
  3. OPIOIDS (OPIOIDS) [Concomitant]
  4. ANALGESIC (ANALGESICS) [Concomitant]

REACTIONS (9)
  - CATHETER RELATED COMPLICATION [None]
  - CAUDA EQUINA SYNDROME [None]
  - DRUG INEFFECTIVE [None]
  - GRANULOMA [None]
  - HYPOAESTHESIA [None]
  - NEUROPATHIC PAIN [None]
  - PAIN IN EXTREMITY [None]
  - RADICULAR PAIN [None]
  - SPINAL CORD OEDEMA [None]
